FAERS Safety Report 7334993-X (Version None)
Quarter: 2011Q1

REPORT INFORMATION
  Report Type: 
  Country: None (occurrence: None)
  Receive Date: 20110307
  Receipt Date: 20110224
  Transmission Date: 20110831
  Serious: Yes (Death)
  Sender: FDA-Public Use
  Company Number: NL-ROCHE-762163

PATIENT
  Sex: Female

DRUGS (1)
  1. METHOXY POLYETHYLENE GLYCOL-EPOETIN BETA [Suspect]
     Dosage: DOSE: 50 UG/0.3ML
     Route: 058
     Dates: start: 20100201, end: 20110101

REACTIONS (1)
  - DEATH [None]
